FAERS Safety Report 7598611-8 (Version None)
Quarter: 2011Q3

REPORT INFORMATION
  Report Type: 
  Country: None (occurrence: None)
  Receive Date: 20110710
  Receipt Date: 20110702
  Transmission Date: 20111222
  Serious: Yes (Hospitalization, Disabling)
  Sender: FDA-Public Use
  Company Number: IN-AMGEN-INDCT2011024802

PATIENT
  Age: 35 Year
  Sex: Female
  Weight: 44 kg

DRUGS (7)
  1. PANITUMUMAB [Suspect]
     Dates: start: 20110303, end: 20110513
  2. RANTAC [Concomitant]
     Indication: HYPERCHLORHYDRIA
     Dosage: UNK
     Route: 042
     Dates: start: 20110317, end: 20110318
  3. PERINORM [Concomitant]
     Indication: VOMITING
     Dosage: UNK
     Dates: start: 20110514, end: 20110531
  4. PANITUMUMAB [Suspect]
     Indication: COLORECTAL CANCER
     Dosage: 240 MG, UNK
     Dates: start: 20110303
  5. DOMSTAL [Concomitant]
     Indication: VOMITING
     Dosage: UNK
     Route: 048
     Dates: start: 20110303
  6. PANITUMUMAB [Suspect]
     Dosage: ADVERSE EVENT
     Dates: start: 20110303, end: 20110513
  7. RABEPRAZOLE SODIUM [Concomitant]
     Indication: HYPERCHLORHYDRIA
     Dosage: UNK
     Route: 048
     Dates: start: 20110303, end: 20110531

REACTIONS (3)
  - HEPATOCELLULAR INJURY [None]
  - DYSPNOEA [None]
  - INTESTINAL OBSTRUCTION [None]
